FAERS Safety Report 9179004 (Version 2)
Quarter: 2013Q3

REPORT INFORMATION
  Report Type: Report from Study
  Country: US (occurrence: US)
  Receive Date: 20130321
  Receipt Date: 20130710
  Transmission Date: 20140515
  Serious: Yes (Other)
  Sender: FDA-Public Use
  Company Number: US-ROCHE-1204265

PATIENT
  Sex: 0

DRUGS (4)
  1. BEVACIZUMAB [Suspect]
     Indication: NEOPLASM
     Route: 042
  2. BEVACIZUMAB [Suspect]
     Route: 042
  3. INVESTIGATIONAL DRUG [Suspect]
     Indication: NEOPLASM
     Route: 042
  4. INVESTIGATIONAL DRUG [Suspect]
     Route: 042

REACTIONS (2)
  - Headache [Recovering/Resolving]
  - Sinus congestion [Recovering/Resolving]
